FAERS Safety Report 24307043 (Version 1)
Quarter: 2024Q3

REPORT INFORMATION
  Report Type: Spontaneous
  Country: CN (occurrence: CN)
  Receive Date: 20240911
  Receipt Date: 20240911
  Transmission Date: 20241017
  Serious: Yes (Other)
  Sender: CHEPLAPHARM
  Company Number: CN-CHEPLA-2024011591

PATIENT
  Age: 79 Year
  Sex: Female
  Weight: 86 kg

DRUGS (1)
  1. GANCICLOVIR [Suspect]
     Active Substance: GANCICLOVIR
     Indication: Pneumonia cytomegaloviral
     Dosage: APPROVAL NO.H20130374, BID, EVERY 12 HOURS ?DAILY DOSE: 0.86 GRAM
     Route: 042
     Dates: start: 20240902, end: 20240905

REACTIONS (3)
  - Mental disorder [Unknown]
  - Cerebral infarction [Unknown]
  - Cerebral atrophy [Unknown]

NARRATIVE: CASE EVENT DATE: 20240902
